FAERS Safety Report 24151388 (Version 1)
Quarter: 2024Q3

REPORT INFORMATION
  Report Type: Report from Study
  Country: US (occurrence: None)
  Receive Date: 20240730
  Receipt Date: 20240730
  Transmission Date: 20241017
  Serious: Yes (Disabling, Other)
  Sender: ASTRAZENECA
  Company Number: 2024A171411

PATIENT
  Sex: Male

DRUGS (8)
  1. TAGRISSO [Suspect]
     Active Substance: OSIMERTINIB
     Indication: Lung carcinoma cell type unspecified stage 0
     Dosage: 1 TABLET BY MOUTH EVERY DAY
     Route: 048
  2. AMLODIPINE [Concomitant]
     Active Substance: AMLODIPINE BESYLATE
     Dosage: 10 MG
  3. ATORVASTATIN [Concomitant]
     Active Substance: ATORVASTATIN
     Dosage: 40 MG
  4. PANTOPRAZOLE [Concomitant]
     Active Substance: PANTOPRAZOLE
     Dosage: 40 MG
  5. SERTRAALINE H [Concomitant]
     Dosage: 50 MG
  6. VALSARTAN [Concomitant]
     Active Substance: VALSARTAN
     Dosage: 160 MG
  7. VITAMIN D [Concomitant]
     Active Substance: VITAMIN D NOS
     Dosage: 25 MCG
  8. FINASTERIDE [Concomitant]
     Active Substance: FINASTERIDE
     Dosage: 5 MCG

REACTIONS (5)
  - Embolism [Not Recovered/Not Resolved]
  - Paraplegia [Not Recovered/Not Resolved]
  - Gastrointestinal disorder [Not Recovered/Not Resolved]
  - Depression [Not Recovered/Not Resolved]
  - Diarrhoea [Not Recovered/Not Resolved]
